FAERS Safety Report 8026264-3 (Version None)
Quarter: 2012Q1

REPORT INFORMATION
  Report Type: 
  Country: None (occurrence: None)
  Receive Date: 20120105
  Receipt Date: 20110621
  Transmission Date: 20120608
  Serious: No
  Sender: FDA-Public Use
  Company Number: US-ABBOTT-11P-163-0734027-00

PATIENT
  Age: 63 Year
  Sex: Female

DRUGS (3)
  1. CYTOMEL [Suspect]
     Indication: HYPOTHYROIDISM
     Dates: start: 20110301
  2. SYNTHROID [Suspect]
     Indication: HYPOTHYROIDISM
  3. SYNTHROID [Suspect]

REACTIONS (1)
  - ALOPECIA [None]
